FAERS Safety Report 12311795 (Version 1)
Quarter: 2016Q2

REPORT INFORMATION
  Report Type: Spontaneous
  Country: US (occurrence: US)
  Receive Date: 20160427
  Receipt Date: 20160427
  Transmission Date: 20160815
  Serious: Yes (Other)
  Sender: FDA-Public Use
  Company Number: US-MYLANLABS-2016M1016309

PATIENT

DRUGS (6)
  1. LETROZOLE. [Suspect]
     Active Substance: LETROZOLE
     Indication: UTERINE CANCER
     Dosage: 2.5 MG, QD FOR 30 DAYS
     Dates: start: 201509
  2. CURCUMA LONGA [Concomitant]
     Active Substance: TURMERIC
     Dosage: UNK
     Dates: start: 2012
  3. LEVOTHYROXINE. [Concomitant]
     Active Substance: LEVOTHYROXINE
     Dosage: UNK
     Dates: start: 2010
  4. IBRANCE [Suspect]
     Active Substance: PALBOCICLIB
     Indication: UTERINE CANCER
     Dosage: 125 MG, FOR 21 DAYS
     Dates: start: 201509
  5. COUMADIN [Concomitant]
     Active Substance: WARFARIN SODIUM
     Dosage: UNK
     Dates: start: 201308
  6. CLONAZEPAM. [Concomitant]
     Active Substance: CLONAZEPAM
     Dosage: UNK
     Dates: start: 2012

REACTIONS (7)
  - Platelet count decreased [Recovered/Resolved]
  - Epistaxis [Recovered/Resolved]
  - Disease progression [Unknown]
  - Fatigue [Not Recovered/Not Resolved]
  - Vaginal haemorrhage [Not Recovered/Not Resolved]
  - Dizziness [Not Recovered/Not Resolved]
  - White blood cell count decreased [Not Recovered/Not Resolved]

NARRATIVE: CASE EVENT DATE: 201510
